FAERS Safety Report 6893298-1 (Version None)
Quarter: 2010Q3

REPORT INFORMATION
  Report Type: 
  Country: None (occurrence: None)
  Receive Date: 20100731
  Receipt Date: 20090810
  Transmission Date: 20110219
  Serious: No
  Sender: FDA-Public Use
  Company Number: US-PFIZER INC-2009214658

PATIENT
  Age: 8 Year
  Sex: Male

DRUGS (1)
  1. NEURONTIN [Suspect]
     Indication: PAIN
     Dosage: 2 ML, 2X/DAY

REACTIONS (3)
  - DRUG INEFFECTIVE [None]
  - GASTROINTESTINAL DISORDER [None]
  - PAIN [None]
